FAERS Safety Report 12781409 (Version 1)
Quarter: 2016Q3

REPORT INFORMATION
  Report Type: Report from Study
  Country: DE (occurrence: DE)
  Receive Date: 20160926
  Receipt Date: 20160926
  Transmission Date: 20161109
  Serious: Yes (Hospitalization)
  Sender: FDA-Public Use
  Company Number: US-ASTRAZENECA-2016SF02024

PATIENT
  Age: 10 Month
  Sex: Male

DRUGS (6)
  1. SYNAGIS [Suspect]
     Active Substance: PALIVIZUMAB
     Indication: ANTIVIRAL PROPHYLAXIS
     Dosage: 63.0MG ONCE/SINGLE ADMINISTRATION
     Route: 030
     Dates: start: 20091016, end: 20091016
  2. SYNAGIS [Suspect]
     Active Substance: PALIVIZUMAB
     Indication: ANTIVIRAL PROPHYLAXIS
     Dosage: 104.0MG ONCE/SINGLE ADMINISTRATION
     Route: 030
     Dates: start: 20100219, end: 20100219
  3. SYNAGIS [Suspect]
     Active Substance: PALIVIZUMAB
     Indication: ANTIVIRAL PROPHYLAXIS
     Dosage: 107.0MG ONCE/SINGLE ADMINISTRATION
     Route: 030
     Dates: start: 20100319, end: 20100319
  4. SYNAGIS [Suspect]
     Active Substance: PALIVIZUMAB
     Indication: ANTIVIRAL PROPHYLAXIS
     Dosage: 85.0MG ONCE/SINGLE ADMINISTRATION
     Route: 030
     Dates: start: 20091211, end: 20091211
  5. SYNAGIS [Suspect]
     Active Substance: PALIVIZUMAB
     Indication: ANTIVIRAL PROPHYLAXIS
     Dosage: 74.0MG ONCE/SINGLE ADMINISTRATION
     Route: 030
     Dates: start: 20091113, end: 20091113
  6. SYNAGIS [Suspect]
     Active Substance: PALIVIZUMAB
     Indication: ANTIVIRAL PROPHYLAXIS
     Dosage: 98.0MG ONCE/SINGLE ADMINISTRATION
     Route: 030
     Dates: start: 20100122, end: 20100122

REACTIONS (1)
  - Pneumonia [Unknown]

NARRATIVE: CASE EVENT DATE: 201004
